FAERS Safety Report 11741609 (Version 1)
Quarter: 2015Q4

REPORT INFORMATION
  Report Type: Spontaneous
  Country: PL (occurrence: PL)
  Receive Date: 20151116
  Receipt Date: 20151116
  Transmission Date: 20160304
  Serious: Yes (Other)
  Sender: FDA-Public Use
  Company Number: PL-ROCHE-1660447

PATIENT
  Age: 54 Year
  Sex: Male

DRUGS (2)
  1. URAPIDIL [Concomitant]
     Active Substance: URAPIDIL
     Route: 065
     Dates: start: 20151031
  2. ACTILYSE [Suspect]
     Active Substance: ALTEPLASE
     Indication: ISCHAEMIC STROKE
     Dosage: 48MG
     Route: 065
     Dates: start: 20151031, end: 20151031

REACTIONS (8)
  - Headache [Recovered/Resolved]
  - Shock [Recovered/Resolved]
  - Erythema [Recovered/Resolved]
  - Anxiety [Recovered/Resolved]
  - Paresis [Recovered/Resolved]
  - Burning sensation [Recovered/Resolved]
  - Blood pressure decreased [Recovered/Resolved]
  - Hyperhidrosis [Recovered/Resolved]

NARRATIVE: CASE EVENT DATE: 20151031
